FAERS Safety Report 8926994 (Version 1)
Quarter: 2012Q4

REPORT INFORMATION
  Report Type: 
  Country: US (occurrence: US)
  Receive Date: 20121127
  Receipt Date: 20121127
  Transmission Date: 20130627
  Serious: No
  Sender: FDA-Public Use
  Company Number: US-BAYER-2012-123307

PATIENT
  Age: 83 Year
  Sex: Female
  Weight: 68.03 kg

DRUGS (6)
  1. ALEVE SMOOTH GELS [Suspect]
     Indication: GENERAL BODY PAIN
     Dosage: 1, PRN
     Route: 048
     Dates: start: 201211
  2. CORAGOXINE [Concomitant]
  3. INSULIN [Concomitant]
  4. HYDROCHLOROTHIAZIDE [Concomitant]
  5. BAYER ASPIRIN REGIMEN ADULT LOW STRENGTH [Concomitant]
     Indication: MYOCARDIAL INFARCT PROPHYLAXIS
  6. TEKTURNA [Concomitant]

REACTIONS (1)
  - Drug ineffective [None]
